FAERS Safety Report 9798504 (Version 4)
Quarter: 2014Q2

REPORT INFORMATION
  Report Type: Report from Study
  Country: US (occurrence: US)
  Receive Date: 20140106
  Receipt Date: 20140530
  Transmission Date: 20141212
  Serious: Yes (Hospitalization, Other)
  Sender: FDA-Public Use
  Company Number: US-SA-2013SA135865

PATIENT
  Age: 45 Year
  Sex: Female

DRUGS (5)
  1. OXALIPLATIN [Suspect]
     Indication: COLORECTAL CANCER METASTATIC
     Dosage: FREQUENCY: 1 IN 14 DAYS
     Route: 042
     Dates: start: 20130716
  2. CALCIUM FOLINATE [Suspect]
     Indication: COLORECTAL CANCER METASTATIC
     Dosage: FREQUENCY: 1 IN 14 DAYS
     Route: 042
     Dates: start: 20130716
  3. 5-FU [Suspect]
     Indication: COLORECTAL CANCER METASTATIC
     Dosage: FREQUENCY: 1 IN 14 DAYS
     Route: 042
     Dates: start: 20130716
  4. 5-FU [Suspect]
     Indication: COLORECTAL CANCER METASTATIC
     Dosage: FREQUENCY: 1 IN 14 DAYS
     Route: 040
     Dates: start: 20130716
  5. BEVACIZUMAB [Suspect]
     Indication: COLORECTAL CANCER METASTATIC
     Dosage: FREQUENCY: 1 IN 14 DAYS
     Route: 042
     Dates: start: 20130716

REACTIONS (3)
  - Acute respiratory distress syndrome [Unknown]
  - Postoperative respiratory failure [Recovered/Resolved]
  - Wound drainage [Recovered/Resolved]
